FAERS Safety Report 22995870 (Version 5)
Quarter: 2023Q4

REPORT INFORMATION
  Report Type: Report from Study
  Country: CN (occurrence: None)
  Receive Date: 20230927
  Receipt Date: 20231101
  Transmission Date: 20240109
  Serious: Yes (Hospitalization)
  Sender: FDA-Public Use
  Company Number: CN-ROCHE-3408588

PATIENT
  Age: 71 Year
  Sex: Female
  Weight: 59 kg

DRUGS (7)
  1. ATEZOLIZUMAB [Suspect]
     Active Substance: ATEZOLIZUMAB
     Indication: Triple negative breast cancer
     Dosage: ON 04/AUG/2023, MOST RECENT DOSE (1200 MG) OF LAST BLINDED ATEZOLIZUMAB WAS ADMINISTERED
     Route: 041
     Dates: start: 20230804
  2. CAPECITABINE [Suspect]
     Active Substance: CAPECITABINE
     Indication: Triple negative breast cancer
     Dosage: ON 04/AUG/2023, MOST RECENT DOSE OF CAPECITABINE PRIOR TO AE ONSET WAS 1600 MG.
     Route: 048
     Dates: start: 20230804
  3. FOSAPREPITANT DIMEGLUMINE [Concomitant]
     Active Substance: FOSAPREPITANT DIMEGLUMINE
     Dates: start: 20230821, end: 20230821
  4. CIMETIDINE [Concomitant]
     Active Substance: CIMETIDINE
     Dates: start: 20230821, end: 20230821
  5. TROPISETRON [Concomitant]
     Active Substance: TROPISETRON
     Dates: start: 20230821, end: 20230821
  6. MAGNESIUM ISOGLYCYRRHIZINATE [Concomitant]
     Active Substance: MAGNESIUM ISOGLYCYRRHIZINATE
     Dates: start: 20230821, end: 20230822
  7. LENTINAN [Concomitant]
     Active Substance: LENTINAN
     Dates: start: 20230821, end: 20230821

REACTIONS (1)
  - Pleural effusion [Recovered/Resolved]

NARRATIVE: CASE EVENT DATE: 20230817
